FAERS Safety Report 10164892 (Version 1)
Quarter: 2014Q2

REPORT INFORMATION
  Report Type: Spontaneous
  Country: US (occurrence: US)
  Receive Date: 20140510
  Receipt Date: 20140510
  Transmission Date: 20141212
  Serious: No
  Sender: FDA-Public Use
  Company Number: US-BRISTOL-MYERS SQUIBB COMPANY-19529726

PATIENT
  Age: 69 Year
  Sex: Female

DRUGS (26)
  1. BYETTA PEN DISPOSABLE [Suspect]
     Route: 058
  2. METFORMIN HCL [Suspect]
  3. ADVAIR DISKUS [Concomitant]
     Dosage: 1DF:500/50 UNIT NOS
  4. ALBUTEROL [Concomitant]
     Dosage: 1DF:0.83 -EVERY  6 HOURS AS NEEDED
  5. ALLEGRA [Concomitant]
  6. PROAIR HFA [Concomitant]
     Dosage: 2 EVERY 4 HOURS AS NEEDED
  7. ALPRAZOLAM [Concomitant]
  8. ASPIRIN [Concomitant]
  9. DILTIAZEM CD [Concomitant]
  10. ARICEPT [Concomitant]
  11. FAMOTIDINE [Concomitant]
  12. FOSAMAX [Concomitant]
     Dosage: 1DF:70 UNIT NOS
  13. UREA [Concomitant]
     Dosage: CREAM
  14. LAMOTRIGINE [Concomitant]
  15. LOSARTAN [Concomitant]
  16. L-THYROXINE [Concomitant]
  17. MECLIZINE [Concomitant]
  18. MEDROL [Concomitant]
  19. METANX [Concomitant]
  20. MONTELUKAST [Concomitant]
  21. NITROSTAT [Concomitant]
  22. PROTONIX [Concomitant]
  23. SIMVASTATIN [Concomitant]
  24. SINGULAIR [Concomitant]
  25. SPIRONOLACTONE [Concomitant]
  26. TORSEMIDE [Concomitant]

REACTIONS (1)
  - Blood glucose increased [Not Recovered/Not Resolved]
